FAERS Safety Report 15842080 (Version 2)
Quarter: 2019Q2

REPORT INFORMATION
  Report Type: Spontaneous
  Country: PT (occurrence: PT)
  Receive Date: 20190118
  Receipt Date: 20190617
  Transmission Date: 20190711
  Serious: Yes (Hospitalization, Other)
  Sender: FDA-Public Use
  Company Number: PT-MYLANLABS-2019M1003991

PATIENT
  Age: 55 Year
  Sex: Male

DRUGS (2)
  1. METFORMIN [Suspect]
     Active Substance: METFORMIN HYDROCHLORIDE
     Indication: TYPE 2 DIABETES MELLITUS
     Dosage: 2 GRAM, QD
  2. LINAGLIPTIN [Concomitant]
     Active Substance: LINAGLIPTIN
     Indication: TYPE 2 DIABETES MELLITUS
     Dosage: UNK

REACTIONS (8)
  - Weight decreased [Unknown]
  - Contraindicated product administered [Unknown]
  - Thrombotic microangiopathy [Recovering/Resolving]
  - Blood lactate dehydrogenase increased [Recovering/Resolving]
  - Leukopenia [Not Recovered/Not Resolved]
  - Thrombocytopenia [Recovering/Resolving]
  - Vitamin B12 deficiency [Recovering/Resolving]
  - Blood bilirubin increased [Recovering/Resolving]
